FAERS Safety Report 6035342-X (Version None)
Quarter: 2009Q1

REPORT INFORMATION
  Report Type: 
  Country: None (occurrence: None)
  Receive Date: 20090112
  Receipt Date: 20090112
  Transmission Date: 20090719
  Serious: Yes (Other)
  Sender: FDA-Public Use
  Company Number: None

PATIENT
  Age: 82 Year
  Sex: Male
  Weight: 88.4514 kg

DRUGS (1)
  1. AVANDIA [Suspect]

REACTIONS (1)
  - MEDICATION ERROR [None]
